FAERS Safety Report 4464233-0 (Version None)
Quarter: 2004Q4

REPORT INFORMATION
  Report Type: 
  Country: None (occurrence: None)
  Receive Date: 20041001
  Receipt Date: 20040908
  Transmission Date: 20050328
  Serious: Yes (Hospitalization)
  Sender: FDA-Public Use
  Company Number: 2004017316

PATIENT
  Age: 34 Year
  Sex: Female
  Weight: 70 kg

DRUGS (4)
  1. SEROXAT [Suspect]
     Dosage: 20TAB SINGLE DOSE
     Route: 048
  2. TAVOR [Suspect]
     Dosage: 30TAB SINGLE DOSE
     Route: 048
  3. DICLOFENAC [Suspect]
     Dosage: 14TAB SINGLE DOSE
     Route: 048
  4. ALCOHOL [Suspect]
     Dosage: 3BT SINGLE DOSE
     Route: 048

REACTIONS (4)
  - INTENTIONAL OVERDOSE [None]
  - SOMNOLENCE [None]
  - SPEECH DISORDER [None]
  - SUICIDE ATTEMPT [None]
